FAERS Safety Report 7152473-1 (Version None)
Quarter: 2010Q4

REPORT INFORMATION
  Report Type: 
  Country: None (occurrence: None)
  Receive Date: 20101208
  Receipt Date: 20101208
  Transmission Date: 20110411
  Serious: No
  Sender: FDA-Public Use
  Company Number: None

PATIENT
  Age: 59 Year
  Sex: Male
  Weight: 129.2752 kg

DRUGS (1)
  1. LEVAQUIN [Suspect]

REACTIONS (5)
  - ARTHRALGIA [None]
  - BURNING SENSATION [None]
  - HYPOAESTHESIA [None]
  - MENISCUS LESION [None]
  - PARAESTHESIA [None]
